FAERS Safety Report 9159101 (Version 1)
Quarter: 2013Q1

REPORT INFORMATION
  Report Type: Spontaneous
  Country: US (occurrence: None)
  Receive Date: 20130222
  Receipt Date: 20130222
  Transmission Date: 20140127
  Serious: Yes (Other)
  Sender: FDA-Public Use
  Company Number: 001480756A

PATIENT
  Sex: Female

DRUGS (16)
  1. PROACTIV RENEWING CLEANSER [Suspect]
     Indication: ACNE
     Dosage: ONCE, DERMAL
     Route: 023
     Dates: start: 20121202
  2. PROACTIV REPAIRING TREATMENT [Suspect]
     Indication: ACNE
     Dosage: ONCE, DERMAL?
     Route: 023
     Dates: start: 20121202
  3. COUDAMIN [Concomitant]
  4. DIGOXIN [Concomitant]
  5. LEVEMIR (INSULIN) [Concomitant]
  6. GLIMEPIRIDE [Concomitant]
  7. METFORMIN [Concomitant]
  8. DOXAZOSIN [Concomitant]
  9. DICYCLOMINE [Concomitant]
  10. ENALAPRIL [Concomitant]
  11. METOPROLOL [Concomitant]
  12. LASIX [Concomitant]
  13. LIPITOR [Concomitant]
  14. LOVASTATIN [Concomitant]
  15. NITROSTAT FOR CHEST PAIN [Concomitant]
  16. VITAMIN D [Concomitant]

REACTIONS (3)
  - Swelling face [None]
  - Hypersensitivity [None]
  - Skin exfoliation [None]
